FAERS Safety Report 23027674 (Version 1)
Quarter: 2023Q4

REPORT INFORMATION
  Report Type: Spontaneous
  Country: US (occurrence: US)
  Receive Date: 20231004
  Receipt Date: 20231004
  Transmission Date: 20240109
  Serious: Yes (Other)
  Sender: FDA-Public Use
  Company Number: US-AMNEAL PHARMACEUTICALS-2023-AMRX-03379

PATIENT
  Sex: Female

DRUGS (2)
  1. RYTARY [Suspect]
     Active Substance: CARBIDOPA\LEVODOPA
     Indication: Parkinson^s disease
     Dosage: UNK
     Route: 065
  2. RYTARY [Suspect]
     Active Substance: CARBIDOPA\LEVODOPA
     Indication: Peripheral coldness

REACTIONS (12)
  - Dementia [Unknown]
  - Hallucination [Unknown]
  - Feeling abnormal [Unknown]
  - Heart rate increased [Unknown]
  - Limb discomfort [Unknown]
  - Abdominal discomfort [Unknown]
  - Drug hypersensitivity [Unknown]
  - Illness [Unknown]
  - Paranoia [Unknown]
  - Nausea [Unknown]
  - Anxiety [Unknown]
  - Aggression [Unknown]
